FAERS Safety Report 4907940-5 (Version None)
Quarter: 2006Q1

REPORT INFORMATION
  Report Type: 
  Country: None (occurrence: None)
  Receive Date: 20060208
  Receipt Date: 20060124
  Transmission Date: 20060701
  Serious: Yes (Death, Hospitalization)
  Sender: FDA-Public Use
  Company Number: 2006-US-00587

PATIENT
  Age: 68 Year
  Sex: Male

DRUGS (2)
  1. CLARITHROMYCIN [Suspect]
     Indication: PNEUMONIA
     Dosage: 500 MG BID
  2. COLCHICINE [Suspect]
     Indication: GOUT
     Dosage: 0.5 MG Q6H

REACTIONS (13)
  - AGRANULOCYTOSIS [None]
  - CHILLS [None]
  - DIARRHOEA [None]
  - GENERAL PHYSICAL HEALTH DETERIORATION [None]
  - HEPATIC FAILURE [None]
  - HEPATIC NECROSIS [None]
  - HYPOTENSION [None]
  - ILEUS PARALYTIC [None]
  - PANCYTOPENIA [None]
  - PULMONARY TUBERCULOSIS [None]
  - PYREXIA [None]
  - RENAL FAILURE ACUTE [None]
  - THERAPY NON-RESPONDER [None]
